FAERS Safety Report 4864684-6 (Version None)
Quarter: 2005Q4

REPORT INFORMATION
  Report Type: 
  Country: None (occurrence: None)
  Receive Date: 20051222
  Receipt Date: 20051213
  Transmission Date: 20060501
  Serious: Yes (Hospitalization, Disabling)
  Sender: FDA-Public Use
  Company Number: PL-MERCK-0512POL00007

PATIENT
  Sex: Female

DRUGS (2)
  1. VIOXX [Suspect]
     Route: 048
     Dates: start: 20020529, end: 20020801
  2. VIOXX [Suspect]
     Route: 048
     Dates: start: 20020829, end: 20040801

REACTIONS (14)
  - ARRHYTHMIA [None]
  - ATRIAL THROMBOSIS [None]
  - BALANCE DISORDER [None]
  - CAROTID ARTERY THROMBOSIS [None]
  - CEREBROVASCULAR ACCIDENT [None]
  - GASTROINTESTINAL DISORDER [None]
  - GENERAL PHYSICAL HEALTH DETERIORATION [None]
  - HAEMORRHAGE SUBCUTANEOUS [None]
  - MICTURITION DISORDER [None]
  - MYOCARDIAL INFARCTION [None]
  - TINNITUS [None]
  - VERTIGO [None]
  - VISUAL DISTURBANCE [None]
  - WRONG TECHNIQUE IN DRUG USAGE PROCESS [None]
